FAERS Safety Report 18780738 (Version 1)
Quarter: 2021Q1

REPORT INFORMATION
  Report Type: Spontaneous
  Country: US (occurrence: US)
  Receive Date: 20210122
  Receipt Date: 20210122
  Transmission Date: 20210419
  Serious: Yes (Death)
  Sender: FDA-Public Use
  Company Number: None

PATIENT
  Age: 83 Year
  Sex: Male

DRUGS (13)
  1. TRADJENTA 5 MG (LAST FILLED 11/04/2020) [Concomitant]
  2. FINASTERIDE 5MG (LAST FILLED 11/04/2020) [Concomitant]
  3. ERYTHROMYCIN OINTMENT (LAST FILLED 11/30/2020) [Concomitant]
  4. VITAMIN D2 50,000 UNITS (LAST FILLED 11/30/2020) [Concomitant]
  5. TAMSULOSIN 0.4MG(LAST FILLED 11/17/2020) [Concomitant]
  6. FUROSEMIDE 20MG (LAST FILLED 11/04/2020) [Concomitant]
  7. TACROLIMUS 0.5MG [Suspect]
     Active Substance: TACROLIMUS
     Indication: RENAL TRANSPLANT
     Route: 048
     Dates: start: 20180829
  8. MYCOPHENOLATE MOFETIL 250MG [Suspect]
     Active Substance: MYCOPHENOLATE MOFETIL
     Indication: RENAL TRANSPLANT
     Route: 048
     Dates: start: 20190414
  9. GLIPIZIDE 5MG (LAST FILLED 11/04/2020) [Concomitant]
  10. AMINDIPINE 10MG [Concomitant]
  11. HYDROXYZINE HCI 25MG (LAST FILLED 11/17/2020) [Concomitant]
  12. LEVOTHYROXINE 25MCG (LAST FILLED 11/04/2020) [Concomitant]
  13. SODIUM BICARBONATE 650 MG (LAST FILLED 10/21/2020) [Concomitant]

REACTIONS (2)
  - Death [None]
  - COVID-19 [None]

NARRATIVE: CASE EVENT DATE: 20210104
